FAERS Safety Report 4575104-3 (Version None)
Quarter: 2005Q1

REPORT INFORMATION
  Report Type: 
  Country: None (occurrence: None)
  Receive Date: 20050208
  Receipt Date: 20050123
  Transmission Date: 20050727
  Serious: Yes (Hospitalization)
  Sender: FDA-Public Use
  Company Number: DE-GLAXOSMITHKLINE-D0045703A

PATIENT
  Age: 40 Year
  Sex: Male

DRUGS (2)
  1. AUGMENTIN '125' [Suspect]
     Dosage: 1000MG UNKNOWN
     Route: 065
     Dates: start: 20050104, end: 20050105
  2. ANALGESIC [Concomitant]
     Route: 065
     Dates: end: 20050101

REACTIONS (3)
  - CHEST PAIN [None]
  - MYOCARDIAL INFARCTION [None]
  - THROMBOCYTHAEMIA [None]
